FAERS Safety Report 7287502-8 (Version None)
Quarter: 2011Q1

REPORT INFORMATION
  Report Type: 
  Country: None (occurrence: None)
  Receive Date: 20110211
  Receipt Date: 20110203
  Transmission Date: 20110831
  Serious: Yes (Other)
  Sender: FDA-Public Use
  Company Number: TR-BRISTOL-MYERS SQUIBB COMPANY-15534480

PATIENT

DRUGS (4)
  1. DOXORUBICIN [Suspect]
     Dosage: NO CYCLE DURING PREGNANCY:1 NO CYCLE AFTER PREGNANCY:5
     Route: 064
  2. VINBLASTINE [Suspect]
     Dosage: NO CYCLE DURING PREGNANCY:1 NO CYCLE AFTER PREGNANCY:5
     Route: 064
  3. DACARBAZINE [Suspect]
     Route: 064
  4. BLEOMYCIN SULFATE [Suspect]
     Dosage: NO CYCLE DURING PREGNANCY:1 NO CYCLE AFTER PREGNANCY:5
     Route: 064

REACTIONS (1)
  - FOETAL GROWTH RESTRICTION [None]
